FAERS Safety Report 13244134 (Version 2)
Quarter: 2017Q1

REPORT INFORMATION
  Report Type: Spontaneous
  Country: US (occurrence: US)
  Receive Date: 20170217
  Receipt Date: 20170306
  Transmission Date: 20170428
  Serious: No
  Sender: FDA-Public Use
  Company Number: US-ALEXION PHARMACEUTICALS INC.-A201701240

PATIENT
  Sex: Female

DRUGS (1)
  1. STRENSIQ [Suspect]
     Active Substance: ASFOTASE ALFA
     Indication: HYPOPHOSPHATASIA
     Dosage: 56 MG, THREE TIMES A WEEK
     Route: 058
     Dates: start: 20160208

REACTIONS (5)
  - Injection site induration [Unknown]
  - Injection site erythema [Unknown]
  - Anxiety [Unknown]
  - Pain [Unknown]
  - Injection site reaction [Unknown]
